FAERS Safety Report 7945711-6 (Version None)
Quarter: 2011Q4

REPORT INFORMATION
  Report Type: 
  Country: None (occurrence: None)
  Receive Date: 20111129
  Receipt Date: 20110316
  Transmission Date: 20120403
  Serious: No
  Sender: FDA-Public Use
  Company Number: US-MYLANLABS-2011S1005702

PATIENT
  Age: 51 Year
  Sex: Female

DRUGS (1)
  1. CLONAZEPAM [Suspect]
     Route: 048
     Dates: start: 20110201, end: 20110201

REACTIONS (3)
  - BLISTER [None]
  - MYALGIA [None]
  - RASH [None]
